FAERS Safety Report 5746004-8 (Version None)
Quarter: 2008Q2

REPORT INFORMATION
  Report Type: 
  Country: None (occurrence: None)
  Receive Date: 20080522
  Receipt Date: 20080520
  Transmission Date: 20081010
  Serious: Yes (Hospitalization)
  Sender: FDA-Public Use
  Company Number: IT-SP-2008-01651

PATIENT
  Age: 79 Year
  Sex: Male

DRUGS (1)
  1. IMMUCYST [Suspect]
     Indication: BLADDER CANCER
     Route: 043
     Dates: start: 20080226, end: 20080318

REACTIONS (3)
  - HYPERPYREXIA [None]
  - NODULE [None]
  - PULMONARY TUBERCULOSIS [None]
